FAERS Safety Report 5576672-5 (Version None)
Quarter: 2007Q4

REPORT INFORMATION
  Report Type: 
  Country: None (occurrence: None)
  Receive Date: 20071228
  Receipt Date: 20071217
  Transmission Date: 20080405
  Serious: Yes (Other)
  Sender: FDA-Public Use
  Company Number: US-MERCK-0712USA08509

PATIENT
  Age: 43 Year
  Sex: Female

DRUGS (5)
  1. ISENTRESS [Suspect]
     Indication: HIV INFECTION
     Route: 048
     Dates: start: 20071101
  2. PREZISTA [Suspect]
     Indication: ANTIRETROVIRAL THERAPY
     Route: 065
     Dates: start: 20071101
  3. TENOFOVIR [Concomitant]
     Indication: ANTIRETROVIRAL THERAPY
     Route: 065
  4. DIDANOSINE [Concomitant]
     Indication: ANTIRETROVIRAL THERAPY
     Route: 065
  5. TAMIFLU [Concomitant]
     Indication: INFLUENZA
     Route: 065

REACTIONS (5)
  - ALANINE AMINOTRANSFERASE INCREASED [None]
  - ASPARTATE AMINOTRANSFERASE INCREASED [None]
  - DRUG HYPERSENSITIVITY [None]
  - IMMUNE RECONSTITUTION SYNDROME [None]
  - RASH [None]
